FAERS Safety Report 10348001 (Version 1)
Quarter: 2014Q3

REPORT INFORMATION
  Report Type: Spontaneous
  Country: US (occurrence: None)
  Receive Date: 20140725
  Receipt Date: 20140725
  Transmission Date: 20150326
  Serious: Yes (Other)
  Sender: FDA-Public Use
  Company Number: 402500115

PATIENT
  Age: 36 Year
  Sex: Male

DRUGS (1)
  1. THERATEARS [Suspect]
     Active Substance: CARBOXYMETHYLCELLULOSE SODIUM
     Dosage: 1 UNIT/MULTIPLE/TOPICAL
     Route: 061
     Dates: start: 20140708, end: 20140708

REACTIONS (7)
  - Eyelid margin crusting [None]
  - Burning sensation [None]
  - Swelling [None]
  - Erythema [None]
  - Eye swelling [None]
  - Discomfort [None]
  - Infection [None]

NARRATIVE: CASE EVENT DATE: 20140708
